FAERS Safety Report 8468747-8 (Version None)
Quarter: 2012Q2

REPORT INFORMATION
  Report Type: 
  Country: None (occurrence: None)
  Receive Date: 20120626
  Receipt Date: 20120620
  Transmission Date: 20120825
  Serious: Yes (Hospitalization)
  Sender: FDA-Public Use
  Company Number: US-AMGEN-USASP2012038351

PATIENT
  Age: 20 Year
  Sex: Female

DRUGS (1)
  1. EPOGEN [Suspect]
     Indication: DIALYSIS
     Dosage: UNK
     Dates: start: 20110624, end: 20120610

REACTIONS (3)
  - HYPERTENSION [None]
  - PREGNANCY [None]
  - HYPERGLYCAEMIA [None]
